FAERS Safety Report 12763129 (Version 1)
Quarter: 2016Q3

REPORT INFORMATION
  Report Type: Spontaneous
  Country: US (occurrence: US)
  Receive Date: 20160915
  Receipt Date: 20160915
  Transmission Date: 20161109
  Serious: No
  Sender: FDA-Public Use
  Company Number: None

PATIENT
  Sex: Male

DRUGS (1)
  1. CAPECITABINE 500MG TEVA [Suspect]
     Active Substance: CAPECITABINE
     Indication: COLON CANCER
     Dosage: 3 TABS IN AM AND 4-TABS IN PM FOR 14 DAYS ON, 7 DAYS OFF PO
     Route: 048
     Dates: start: 20160420

REACTIONS (5)
  - Temperature intolerance [None]
  - Dysgeusia [None]
  - Diarrhoea [None]
  - Nausea [None]
  - Paraesthesia [None]
